FAERS Safety Report 6424064-9 (Version None)
Quarter: 2009Q4

REPORT INFORMATION
  Report Type: 
  Country: None (occurrence: None)
  Receive Date: 20091102
  Receipt Date: 20091019
  Transmission Date: 20100525
  Serious: Yes (Other)
  Sender: FDA-Public Use
  Company Number: TW-MYLANLABS-2009S1018230

PATIENT
  Age: 29 Year
  Sex: Male

DRUGS (8)
  1. LITHIUM [Interacting]
     Indication: SCHIZOAFFECTIVE DISORDER
     Dosage: 600 MG/DAY
  2. LITHIUM [Interacting]
     Dosage: 900 MG/DAY
  3. LITHIUM [Interacting]
     Dosage: 1200 MG/DAY
  4. CLOZAPINE [Suspect]
     Indication: SCHIZOAFFECTIVE DISORDER
     Dosage: 125-200 MG/DAY
  5. CLOZAPINE [Interacting]
     Dosage: 450 MG/DAY
  6. CLOZAPINE [Interacting]
     Dosage: 500 MG/DAY
  7. VALPROIC ACID [Concomitant]
     Indication: SCHIZOAFFECTIVE DISORDER
     Dosage: 1500 MG/DAY
  8. VALPROIC ACID [Concomitant]
     Dosage: 2000 MG/DAY

REACTIONS (2)
  - DRUG INTERACTION [None]
  - RHABDOMYOLYSIS [None]
